FAERS Safety Report 4341119-3 (Version None)
Quarter: 2004Q2

REPORT INFORMATION
  Report Type: 
  Country: None (occurrence: None)
  Receive Date: 20040413
  Receipt Date: 20040401
  Transmission Date: 20050107
  Serious: Yes (Hospitalization, Other)
  Sender: FDA-Public Use
  Company Number: NSADSS2001029005

PATIENT
  Age: 54 Year
  Sex: Male

DRUGS (13)
  1. REMICADE [Suspect]
     Indication: ANKYLOSING SPONDYLITIS
     Dosage: 3 MG/KG, 1 IN 1 WEEK, IV DRIP, 1/27/00, 2/10/00, 3/9/00, 5/4/00, 7/26/00, 11/23/00, 3/20/01, 8/6/01
     Route: 041
     Dates: start: 20000127, end: 20000127
  2. REMICADE [Suspect]
     Indication: ANKYLOSING SPONDYLITIS
     Dosage: 3 MG/KG, 1 IN 1 WEEK, IV DRIP, 1/27/00, 2/10/00, 3/9/00, 5/4/00, 7/26/00, 11/23/00, 3/20/01, 8/6/01
     Route: 041
     Dates: start: 20000210, end: 20000210
  3. REMICADE [Suspect]
     Indication: ANKYLOSING SPONDYLITIS
     Dosage: 3 MG/KG, 1 IN 1 WEEK, IV DRIP, 1/27/00, 2/10/00, 3/9/00, 5/4/00, 7/26/00, 11/23/00, 3/20/01, 8/6/01
     Route: 041
     Dates: start: 20000309, end: 20000309
  4. REMICADE [Suspect]
     Indication: ANKYLOSING SPONDYLITIS
     Dosage: 3 MG/KG, 1 IN 1 WEEK, IV DRIP, 1/27/00, 2/10/00, 3/9/00, 5/4/00, 7/26/00, 11/23/00, 3/20/01, 8/6/01
     Route: 041
     Dates: start: 20000504, end: 20000504
  5. . [Concomitant]
     Indication: ANKYLOSING SPONDYLITIS
     Dosage: 3 MG/KG, 1 IN 1 AS NECESSARY, INTRAVENOUS DRIP
     Route: 041
     Dates: start: 20000210, end: 20000210
  6. . [Concomitant]
     Indication: ANKYLOSING SPONDYLITIS
     Dosage: 3 MG/KG, 1 IN 1 AS NECEAARY, INTRAVENOUS DRIP
     Route: 041
     Dates: start: 20000309, end: 20000309
  7. . [Concomitant]
     Indication: ANKYLOSING SPONDYLITIS
     Dosage: 3 MG/KG, 1 IN 1 AS NECESSARY, INTRAVENOUS DRIP
     Route: 041
     Dates: start: 20000504, end: 20000504
  8. . [Concomitant]
     Indication: ANKYLOSING SPONDYLITIS
     Dosage: 3 MG/KG, 1 IN 1 AS NECESSARY, INTRAVENOUS DRIP
     Route: 041
     Dates: start: 20000726, end: 20000726
  9. . [Concomitant]
     Indication: ANKYLOSING SPONDYLITIS
     Dosage: 3 MG/KG, 1 IN 1 AS NECESSARY, INTRAVENOUS DRIP
     Route: 041
     Dates: start: 20001123, end: 20001123
  10. . [Concomitant]
     Indication: ANKYLOSING SPONDYLITIS
     Dosage: 3 MG/KG, 1 IN 1 AS NECESSARY, INTRAVENOUS DRIP
     Route: 041
     Dates: start: 20010320, end: 20010320
  11. . [Concomitant]
     Indication: ANKYLOSING SPONDYLITIS
     Dosage: 3 MG/KG, 1 IN 1 AS NECESSARY, INTRAVENOUS DRIP
     Route: 041
     Dates: start: 20010806, end: 20010806
  12. SANDIMMUNE [Suspect]
     Dosage: 175 MG
     Dates: start: 19981101, end: 20010801
  13. SULFASALAZINE [Concomitant]

REACTIONS (3)
  - BASAL CELL CARCINOMA [None]
  - NEOPLASM SKIN [None]
  - RECURRENT CANCER [None]
